FAERS Safety Report 8088705-5 (Version None)
Quarter: 2012Q1

REPORT INFORMATION
  Report Type: 
  Country: None (occurrence: None)
  Receive Date: 20120128
  Receipt Date: 20110607
  Transmission Date: 20120608
  Serious: No
  Sender: FDA-Public Use
  Company Number: US-ABBOTT-11P-163-0730773-00

PATIENT
  Age: 45 Year
  Sex: Female

DRUGS (5)
  1. LAMICTAL XR [Concomitant]
     Indication: MIGRAINE
  2. HUMIRA [Suspect]
     Indication: PSORIASIS
     Dates: start: 20071001
  3. SINGULAIR [Concomitant]
     Indication: HYPERSENSITIVITY
  4. SINGULAIR [Concomitant]
     Indication: ASTHMA
  5. MAXALT [Concomitant]
     Indication: MIGRAINE

REACTIONS (1)
  - PSORIASIS [None]
